FAERS Safety Report 6443129-9 (Version None)
Quarter: 2009Q4

REPORT INFORMATION
  Report Type: 
  Country: None (occurrence: None)
  Receive Date: 20091117
  Receipt Date: 20091113
  Transmission Date: 20100525
  Serious: Yes (Other)
  Sender: FDA-Public Use
  Company Number: A0814008A

PATIENT
  Age: 24 Year
  Sex: Female
  Weight: 63.6 kg

DRUGS (2)
  1. LAMICTAL XR [Suspect]
     Indication: HEADACHE
     Dosage: 25MG UNKNOWN
     Route: 048
     Dates: start: 20091006, end: 20091020
  2. UNKNOWN [Concomitant]

REACTIONS (9)
  - ADVERSE DRUG REACTION [None]
  - DISABILITY [None]
  - DRUG ERUPTION [None]
  - ERYTHEMA MULTIFORME [None]
  - IMPAIRED WORK ABILITY [None]
  - PAIN [None]
  - RASH [None]
  - RASH PAPULAR [None]
  - RASH PRURITIC [None]
